FAERS Safety Report 7030843-X (Version None)
Quarter: 2010Q4

REPORT INFORMATION
  Report Type: 
  Country: None (occurrence: None)
  Receive Date: 20101006
  Receipt Date: 20100930
  Transmission Date: 20110411
  Serious: Yes (Hospitalization)
  Sender: FDA-Public Use
  Company Number: US-MERCK-1010USA00005

PATIENT
  Age: 56 Year
  Sex: Male

DRUGS (2)
  1. CRIXIVAN [Suspect]
     Indication: HIV INFECTION
     Route: 048
     Dates: start: 19960101, end: 19960101
  2. EPIVIR [Concomitant]
     Route: 065

REACTIONS (2)
  - DEHYDRATION [None]
  - NEPHROLITHIASIS [None]
